FAERS Safety Report 18003309 (Version 1)
Quarter: 2020Q3

REPORT INFORMATION
  Report Type: Other
  Country: GB (occurrence: GB)
  Receive Date: 20200710
  Receipt Date: 20200710
  Transmission Date: 20201103
  Serious: Yes (Hospitalization, Other)
  Sender: FDA-Public Use
  Company Number: GB-LUPIN PHARMACEUTICALS INC.-2016-05994

PATIENT
  Age: 25 Year
  Sex: Female

DRUGS (2)
  1. LEVETIRACETAM. [Suspect]
     Active Substance: LEVETIRACETAM
     Indication: EPILEPSY
     Dosage: 3500 MILLIGRAM, QD
     Route: 065
  2. LEVETIRACETAM. [Suspect]
     Active Substance: LEVETIRACETAM
     Dosage: 4000 MG IF NEEDED (HIGHER THAN NORMALLY PRESCRIBED DOSE 3500 MG DAILY)
     Route: 065

REACTIONS (3)
  - Intentional overdose [Unknown]
  - Maternal exposure during pregnancy [Unknown]
  - Generalised tonic-clonic seizure [Unknown]
